FAERS Safety Report 6818832-9 (Version None)
Quarter: 2010Q2

REPORT INFORMATION
  Report Type: 
  Country: None (occurrence: None)
  Receive Date: 20100630
  Receipt Date: 20100601
  Transmission Date: 20101027
  Serious: Yes (Hospitalization)
  Sender: FDA-Public Use
  Company Number: 623246

PATIENT
  Age: 81 Year
  Sex: Female
  Weight: 69 kg

DRUGS (7)
  1. OXALIPLATIN [Suspect]
     Indication: COLON CANCER
     Dosage: 200 MG MILLIGRAM(S),
     Dates: start: 20100319, end: 20100503
  2. ATACAND [Concomitant]
  3. ENALAPRIL MALEATE [Concomitant]
  4. (SOTALOLOL HYDROCHLORIDE) [Concomitant]
  5. (STRUMAZOL) [Concomitant]
  6. (LEVOTHYROXINE) [Concomitant]
  7. TRUSOPT [Concomitant]

REACTIONS (2)
  - INFUSION RELATED REACTION [None]
  - LARYNGOSPASM [None]
